FAERS Safety Report 21041001 (Version 4)
Quarter: 2022Q4

REPORT INFORMATION
  Report Type: Report from Study
  Country: CO (occurrence: CO)
  Receive Date: 20220704
  Receipt Date: 20221007
  Transmission Date: 20230113
  Serious: Yes (Death, Hospitalization, Other)
  Sender: FDA-Public Use
  Company Number: CO-ABBVIE-22K-036-4453813-00

PATIENT
  Age: 82 Year
  Sex: Female
  Weight: 70 kg

DRUGS (1)
  1. HUMIRA [Suspect]
     Active Substance: ADALIMUMAB
     Indication: Rheumatoid arthritis
     Route: 058
     Dates: start: 20200211, end: 20220614

REACTIONS (13)
  - Death [Fatal]
  - Oxygen saturation decreased [Recovering/Resolving]
  - Malnutrition [Recovering/Resolving]
  - Hypophagia [Unknown]
  - Hypercapnia [Not Recovered/Not Resolved]
  - Cerebral disorder [Recovering/Resolving]
  - Somnolence [Recovering/Resolving]
  - Metabolic disorder [Recovering/Resolving]
  - Bronchial disorder [Recovering/Resolving]
  - Lung disorder [Recovering/Resolving]
  - Laboratory test abnormal [Recovering/Resolving]
  - COVID-19 [Recovering/Resolving]
  - COVID-19 pneumonia [Recovering/Resolving]

NARRATIVE: CASE EVENT DATE: 20220601
